FAERS Safety Report 6535882-0 (Version None)
Quarter: 2010Q1

REPORT INFORMATION
  Report Type: 
  Country: None (occurrence: None)
  Receive Date: 20100106
  Receipt Date: 20091221
  Transmission Date: 20100710
  Serious: Yes (Other)
  Sender: FDA-Public Use
  Company Number: CTI_01103_2009

PATIENT
  Age: 57 Year
  Sex: Male

DRUGS (5)
  1. FACTIVE [Suspect]
     Indication: BRONCHITIS
     Dosage: (320 MG QD ORAL)
     Route: 048
     Dates: start: 20091208, end: 20091213
  2. FACTIVE [Suspect]
     Indication: SINUSITIS
     Dosage: (320 MG QD ORAL)
     Route: 048
     Dates: start: 20091208, end: 20091213
  3. ALTACE [Concomitant]
  4. ACTOPLUS MET [Concomitant]
  5. BYETTA [Concomitant]

REACTIONS (2)
  - DYSPNOEA EXERTIONAL [None]
  - VENTRICULAR EXTRASYSTOLES [None]
